FAERS Safety Report 15838660 (Version 3)
Quarter: 2019Q1

REPORT INFORMATION
  Report Type: Spontaneous
  Country: US (occurrence: US)
  Receive Date: 20190117
  Receipt Date: 20190305
  Transmission Date: 20190417
  Serious: No
  Sender: FDA-Public Use
  Company Number: US-AMGEN-USASP2019006380

PATIENT
  Age: 84 Year
  Sex: Female
  Weight: 73.3 kg

DRUGS (5)
  1. METHOTREXATE. [Concomitant]
     Active Substance: METHOTREXATE
     Indication: RHEUMATOID ARTHRITIS
     Dosage: 7.5 MG, QWK
     Route: 065
  2. ENBREL [Suspect]
     Active Substance: ETANERCEPT
     Dosage: 50 MG, QWK
     Route: 065
     Dates: start: 20190122
  3. ENBREL [Suspect]
     Active Substance: ETANERCEPT
     Dosage: 50 MG, UNK
     Route: 065
  4. ENBREL [Suspect]
     Active Substance: ETANERCEPT
     Dosage: 50 MG, UNK
     Route: 065
  5. ENBREL [Suspect]
     Active Substance: ETANERCEPT
     Indication: RHEUMATOID ARTHRITIS
     Dosage: 25 MG, 2 TIMES/WK
     Route: 065
     Dates: start: 20180111

REACTIONS (10)
  - Muscular weakness [Not Recovered/Not Resolved]
  - Accidental exposure to product [Unknown]
  - Musculoskeletal stiffness [Unknown]
  - Injection site pain [Recovered/Resolved]
  - Product dose omission [Unknown]
  - Pain in extremity [Unknown]
  - Incorrect dose administered by device [Unknown]
  - Device issue [Unknown]
  - Balance disorder [Not Recovered/Not Resolved]
  - Injection site erythema [Unknown]

NARRATIVE: CASE EVENT DATE: 201901
